FAERS Safety Report 18942440 (Version 1)
Quarter: 2021Q1

REPORT INFORMATION
  Report Type: Spontaneous
  Country: CH (occurrence: CH)
  Receive Date: 20210225
  Receipt Date: 20210225
  Transmission Date: 20210420
  Serious: Yes (Other)
  Sender: FDA-Public Use
  Company Number: CH-009507513-2102CHE008819

PATIENT
  Sex: Male

DRUGS (1)
  1. KEYTRUDA [Suspect]
     Active Substance: PEMBROLIZUMAB
     Indication: LUNG ADENOCARCINOMA
     Dosage: EVERY 3 WEEK
     Dates: start: 20190124, end: 20200826

REACTIONS (2)
  - Rash [Unknown]
  - Eosinophilic fasciitis [Unknown]

NARRATIVE: CASE EVENT DATE: 20200527
